FAERS Safety Report 25928594 (Version 1)
Quarter: 2025Q4

REPORT INFORMATION
  Report Type: Spontaneous
  Country: US (occurrence: US)
  Receive Date: 20251016
  Receipt Date: 20251016
  Transmission Date: 20260118
  Serious: No
  Sender: BIOLOGICAL E. LIMITED
  Company Number: US-BELUSA-2025BELSPO0061

PATIENT

DRUGS (1)
  1. ENOXAPARIN SODIUM INJECTION,USP [Suspect]
     Active Substance: ENOXAPARIN SODIUM
     Indication: Thrombosis
     Dosage: TWO INJECTIONS DAILY

REACTIONS (2)
  - Device issue [Unknown]
  - Device malfunction [Unknown]
